FAERS Safety Report 20445416 (Version 3)
Quarter: 2022Q1

REPORT INFORMATION
  Report Type: Report from Study
  Country: US (occurrence: US)
  Receive Date: 20220208
  Receipt Date: 20220309
  Transmission Date: 20220423
  Serious: Yes (Hospitalization)
  Sender: FDA-Public Use
  Company Number: US-JNJFOC-20211163783

PATIENT
  Age: 8 Year
  Sex: Male
  Weight: 20.2 kg

DRUGS (1)
  1. USTEKINUMAB [Suspect]
     Active Substance: USTEKINUMAB
     Indication: Ichthyosis
     Route: 058
     Dates: start: 20210415

REACTIONS (3)
  - Rash [Unknown]
  - Viral rash [Unknown]
  - Pyrexia [Recovering/Resolving]

NARRATIVE: CASE EVENT DATE: 20211012
